FAERS Safety Report 7551290-8 (Version None)
Quarter: 2011Q2

REPORT INFORMATION
  Report Type: 
  Country: None (occurrence: None)
  Receive Date: 20110616
  Receipt Date: 20110616
  Transmission Date: 20111010
  Serious: Yes (Hospitalization)
  Sender: FDA-Public Use
  Company Number: PHHO1997DE02240

PATIENT
  Sex: Female

DRUGS (1)
  1. BASILIXIMAB [Suspect]
     Indication: LIVER TRANSPLANT
     Dosage: 20 MG (D0,4)
     Route: 042
     Dates: start: 19960329

REACTIONS (2)
  - HEPATITIS NON-A NON-B [None]
  - LIVER FUNCTION TEST ABNORMAL [None]
